FAERS Safety Report 15925602 (Version 1)
Quarter: 2019Q1

REPORT INFORMATION
  Report Type: Spontaneous
  Country: US (occurrence: US)
  Receive Date: 20190206
  Receipt Date: 20190206
  Transmission Date: 20190417
  Serious: Yes (Life-Threatening, Hospitalization)
  Sender: FDA-Public Use
  Company Number: None

PATIENT
  Age: 33 Year
  Sex: Female
  Weight: 74.84 kg

DRUGS (1)
  1. PARAGARD T 380A [Suspect]
     Active Substance: COPPER

REACTIONS (7)
  - Pregnancy with contraceptive device [None]
  - Infertility female [None]
  - Post procedural complication [None]
  - Ectopic pregnancy [None]
  - Fallopian tube perforation [None]
  - Haemorrhage [None]
  - Fallopian tube cyst [None]

NARRATIVE: CASE EVENT DATE: 20170601
